FAERS Safety Report 9969841 (Version 1)
Quarter: 2014Q1

REPORT INFORMATION
  Report Type: Spontaneous
  Country: IT (occurrence: None)
  Receive Date: 20140304
  Receipt Date: 20140304
  Transmission Date: 20141002
  Serious: Yes (Hospitalization)
  Sender: FDA-Public Use
  Company Number: FK201400638

PATIENT
  Age: 73 Year
  Sex: Female

DRUGS (3)
  1. GRANISETRON HYDROCHLORIDE [Suspect]
     Indication: NAUSEA
     Dosage: NOT OTHERWISE SPECIFIED
     Route: 042
     Dates: start: 20140127, end: 20140127
  2. ANZATAX [Suspect]
     Indication: OVARIAN CANCER
     Dosage: 2 DOESES-CYCLIC, NOT OTHERWISE SPECIFIED
     Route: 042
     Dates: start: 20131231, end: 20140127
  3. CARBOPLATINO [Suspect]
     Indication: OVARIAN CANCER
     Dosage: 2 DOSES-CYCLIC NOT OTHERWISE SPECIFIED
     Route: 042
     Dates: start: 20131231, end: 20140127

REACTIONS (12)
  - Hypokalaemia [None]
  - Haematocrit decreased [None]
  - Haemoglobin decreased [None]
  - Monocyte percentage decreased [None]
  - Lymphocyte percentage decreased [None]
  - Neutrophil percentage increased [None]
  - Oxygen saturation decreased [None]
  - Blood sodium decreased [None]
  - C-reactive protein increased [None]
  - Abdominal pain [None]
  - Vomiting [None]
  - Constipation [None]
